FAERS Safety Report 15065529 (Version 1)
Quarter: 2018Q2

REPORT INFORMATION
  Report Type: Spontaneous
  Country: IT (occurrence: IT)
  Receive Date: 20180626
  Receipt Date: 20180626
  Transmission Date: 20180711
  Serious: Yes (Hospitalization)
  Sender: FDA-Public Use
  Company Number: IT-UNICHEM PHARMACEUTICALS (USA) INC-UCM201806-000143

PATIENT
  Age: 42 Year
  Sex: Female

DRUGS (9)
  1. DIVALPROEX SODIUM. [Suspect]
     Active Substance: DIVALPROEX SODIUM
     Dates: start: 201603
  2. CLOZAPINE. [Suspect]
     Active Substance: CLOZAPINE
     Dates: start: 201603
  3. SERTRALINE [Suspect]
     Active Substance: SERTRALINE HYDROCHLORIDE
     Dates: start: 201603
  4. CIPROFLOXACINE [Concomitant]
     Active Substance: CIPROFLOXACIN
  5. CLOZAPINE. [Suspect]
     Active Substance: CLOZAPINE
     Dates: start: 2007
  6. COLCHICINE. [Concomitant]
     Active Substance: COLCHICINE
     Indication: INFLAMMATION
  7. ZUCLOPENTIXOL [Suspect]
     Active Substance: ZUCLOPENTHIXOL
     Dates: start: 201603
  8. ACETYLSALICYLIC ACID [Concomitant]
     Active Substance: ASPIRIN
  9. FUROSEMIDE. [Concomitant]
     Active Substance: FUROSEMIDE
     Indication: OEDEMA PERIPHERAL

REACTIONS (1)
  - Serositis [Recovering/Resolving]
